FAERS Safety Report 7751771-8 (Version None)
Quarter: 2011Q3

REPORT INFORMATION
  Report Type: 
  Country: None (occurrence: None)
  Receive Date: 20110915
  Receipt Date: 20110906
  Transmission Date: 20111222
  Serious: Yes (Other)
  Sender: FDA-Public Use
  Company Number: US-US-EMD SERONO, INC.-7081992

PATIENT
  Sex: Female

DRUGS (3)
  1. REBIF [Suspect]
     Indication: MULTIPLE SCLEROSIS
     Route: 058
     Dates: start: 20090903
  2. UNSPECIFIED MEDICATION FOR HIGH BLOOD PRESSURE [Concomitant]
     Indication: HYPERTENSION
  3. UNSPECIFIED MEDICATION FOR DIABETES [Concomitant]
     Indication: DIABETES MELLITUS

REACTIONS (5)
  - JOINT INJURY [None]
  - BLOOD GLUCOSE DECREASED [None]
  - FUNGAL INFECTION [None]
  - INJECTION SITE EROSION [None]
  - FALL [None]
